FAERS Safety Report 15254470 (Version 1)
Quarter: 2018Q3

REPORT INFORMATION
  Report Type: Spontaneous
  Country: US (occurrence: US)
  Receive Date: 20180717
  Receipt Date: 20180717
  Transmission Date: 20181010
  Serious: No
  Sender: FDA-Public Use
  Company Number: None

PATIENT
  Age: 60 Year
  Sex: Female

DRUGS (1)
  1. GLATIRAMER 40MG FS INJ (12/BOX) [Suspect]
     Active Substance: GLATIRAMER ACETATE
     Dates: start: 20130717, end: 20180717

REACTIONS (1)
  - Flushing [None]

NARRATIVE: CASE EVENT DATE: 20130717
